FAERS Safety Report 8472380-1 (Version None)
Quarter: 2012Q2

REPORT INFORMATION
  Report Type: 
  Country: None (occurrence: None)
  Receive Date: 20120323
  Receipt Date: 20111026
  Transmission Date: 20120825
  Serious: Yes (Hospitalization)
  Sender: FDA-Public Use
  Company Number: 163-21880-11103150

PATIENT
  Age: 84 Year
  Sex: Female

DRUGS (1)
  1. REVLIMID [Suspect]
     Indication: MULTIPLE MYELOMA
     Dosage: 15 MG, EVERY OTHER DAY X 10 DOSES, PO
     Route: 048
     Dates: start: 20110901

REACTIONS (2)
  - TACHYCARDIA [None]
  - ATRIAL FIBRILLATION [None]
